FAERS Safety Report 5629691-4 (Version None)
Quarter: 2008Q1

REPORT INFORMATION
  Report Type: 
  Country: None (occurrence: None)
  Receive Date: 20080214
  Receipt Date: 20080204
  Transmission Date: 20080703
  Serious: Yes (Death)
  Sender: FDA-Public Use
  Company Number: 2008-01094

PATIENT
  Age: 22 Year
  Sex: Female

DRUGS (7)
  1. FIORINAL W/CODEINE [Suspect]
  2. MEPERIDINE HYDROCHLORIDE                          (WATSON LABORATORIES [Suspect]
  3. PROPOXYPHENE HYDROCHLORIDE/ACETAMINOPHEN 65/650 [Suspect]
  4. DIPHENHYDRAMINE HCL [Suspect]
  5. ... [Concomitant]
  6. DEXTROAMPHETAMINE SAC/SLF, AMPHETAMINE ASP/SLF 5 (MIXED SALTS) (DEXTRO [Suspect]
  7. HYDROCODONE BITARTRATE/ACETAMINOPHEN UNKNOWN STRENGTH [Suspect]

REACTIONS (1)
  - CARDIO-RESPIRATORY ARREST [None]
